FAERS Safety Report 24665206 (Version 1)
Quarter: 2024Q4

REPORT INFORMATION
  Report Type: Spontaneous
  Country: GB (occurrence: GB)
  Receive Date: 20241126
  Receipt Date: 20241126
  Transmission Date: 20250115
  Serious: Yes (Death)
  Sender: GENMAB
  Company Number: GB-ABBVIE-6011503

PATIENT
  Age: 93 Year
  Sex: Male

DRUGS (1)
  1. EPCORITAMAB [Suspect]
     Active Substance: EPCORITAMAB
     Indication: Diffuse large B-cell lymphoma
     Dosage: RECEIVED A MAXIMUM OF 3 DOSES TO DAY 15
     Route: 058

REACTIONS (1)
  - Respiratory failure [Fatal]
